FAERS Safety Report 5448539-4 (Version None)
Quarter: 2007Q3

REPORT INFORMATION
  Report Type: 
  Country: None (occurrence: None)
  Receive Date: 20070911
  Receipt Date: 20070902
  Transmission Date: 20080115
  Serious: Yes (Hospitalization)
  Sender: FDA-Public Use
  Company Number: US-ELI_LILLY_AND_COMPANY-US200708003604

PATIENT
  Sex: Female

DRUGS (1)
  1. FORTEO [Suspect]
     Dates: start: 20070629

REACTIONS (3)
  - CORONARY ARTERY OCCLUSION [None]
  - INJECTION SITE BRUISING [None]
  - INJECTION SITE PAIN [None]
